FAERS Safety Report 7373796-7 (Version None)
Quarter: 2011Q1

REPORT INFORMATION
  Report Type: 
  Country: None (occurrence: None)
  Receive Date: 20110325
  Receipt Date: 20110315
  Transmission Date: 20110831
  Serious: Yes (Hospitalization, Other)
  Sender: FDA-Public Use
  Company Number: US-PFIZER INC-2010036970

PATIENT
  Sex: Female
  Weight: 49 kg

DRUGS (1)
  1. DILANTIN-125 [Suspect]
     Indication: CONVULSION
     Dosage: 100MG, 2X/DAY AND 150MG, 1X/DAY
     Route: 048
     Dates: start: 20071010, end: 20071101

REACTIONS (1)
  - STEVENS-JOHNSON SYNDROME [None]
